FAERS Safety Report 16531963 (Version 1)
Quarter: 2019Q3

REPORT INFORMATION
  Report Type: Spontaneous
  Country: US (occurrence: US)
  Receive Date: 20190523
  Receipt Date: 20190523
  Transmission Date: 20191004
  Serious: No
  Sender: FDA-Public Use
  Company Number: None

PATIENT
  Age: 75 Year
  Sex: Female

DRUGS (2)
  1. REPATHA [Suspect]
     Active Substance: EVOLOCUMAB
     Indication: CAROTID ARTERY STENOSIS
     Dosage: ?          OTHER
     Route: 058
     Dates: start: 201808
  2. REPATHA [Suspect]
     Active Substance: EVOLOCUMAB
     Indication: CAROTID ARTERY OCCLUSION
     Dosage: ?          OTHER
     Route: 058
     Dates: start: 201808

REACTIONS (2)
  - Myalgia [None]
  - Back pain [None]

NARRATIVE: CASE EVENT DATE: 20190509
